FAERS Safety Report 21916650 (Version 1)
Quarter: 2023Q1

REPORT INFORMATION
  Report Type: Spontaneous
  Country: NL (occurrence: NL)
  Receive Date: 20230126
  Receipt Date: 20230126
  Transmission Date: 20230417
  Serious: Yes (Other)
  Sender: FDA-Public Use
  Company Number: None

PATIENT
  Sex: Male
  Weight: 85 kg

DRUGS (1)
  1. ADALIMUMAB [Suspect]
     Active Substance: ADALIMUMAB
     Indication: Psoriasis
     Dosage: 1 DF, BIWEEKLY 1X IN 2 WEEKS 2 INJECTIONS
     Route: 065
     Dates: start: 20220805

REACTIONS (1)
  - Toxic skin eruption [Recovered/Resolved]
